FAERS Safety Report 23411620 (Version 1)
Quarter: 2024Q1

REPORT INFORMATION
  Report Type: Spontaneous
  Country: IT (occurrence: IT)
  Receive Date: 20240117
  Receipt Date: 20240117
  Transmission Date: 20240409
  Serious: Yes (Other)
  Sender: FDA-Public Use
  Company Number: None

PATIENT
  Sex: Male

DRUGS (3)
  1. QUETIAPINE [Suspect]
     Active Substance: QUETIAPINE
     Indication: Product used for unknown indication
     Dosage: 2000 MILLIGRAM (INTAKE OF 10 TABLETS OF 200 MG)
     Route: 048
     Dates: start: 20231230, end: 20231230
  2. SERTRALINE [Suspect]
     Active Substance: SERTRALINE HYDROCHLORIDE
     Indication: Product used for unknown indication
     Dosage: 300 MILLIGRAM (SWALLOW 6 TABLETS OF 50 MG)
     Route: 048
     Dates: start: 20231230, end: 20231230
  3. VALPROATE SODIUM [Suspect]
     Active Substance: VALPROATE SODIUM
     Indication: Product used for unknown indication
     Dosage: 7000 MILLIGRAM (REPORTED INTAKE OF 14 TABLETS OF 500 MG)
     Route: 048
     Dates: start: 20231230, end: 20231230

REACTIONS (3)
  - Sopor [Not Recovered/Not Resolved]
  - Drug abuse [Unknown]
  - Intentional overdose [Not Recovered/Not Resolved]

NARRATIVE: CASE EVENT DATE: 20231230
